FAERS Safety Report 11396859 (Version 2)
Quarter: 2015Q3

REPORT INFORMATION
  Report Type: Report from Study
  Country: GB (occurrence: GB)
  Receive Date: 20150819
  Receipt Date: 20150910
  Transmission Date: 20151125
  Serious: Yes (Hospitalization)
  Sender: FDA-Public Use
  Company Number: GB-NOVOPROD-425976

PATIENT
  Age: 1 Day
  Sex: Male
  Weight: 2.95 kg

DRUGS (7)
  1. INSULIN DETEMIR 2.4 MMOL/L [Suspect]
     Active Substance: INSULIN DETEMIR
     Dosage: 53.0 IU, QD
     Route: 064
     Dates: end: 20140801
  2. NOVORAPID [Suspect]
     Active Substance: INSULIN ASPART
     Indication: TYPE 1 DIABETES MELLITUS
     Dosage: 66 IU, QD
     Route: 064
     Dates: end: 20140801
  3. INSULIN DETEMIR 2.4 MMOL/L [Suspect]
     Active Substance: INSULIN DETEMIR
     Indication: TYPE 1 DIABETES MELLITUS
     Dosage: 34 U, QD
     Route: 064
     Dates: end: 20140801
  4. FOLIC ACID. [Concomitant]
     Active Substance: FOLIC ACID
     Indication: PROPHYLAXIS
     Dosage: 5MG
     Route: 064
     Dates: start: 20140107
  5. NOVORAPID [Suspect]
     Active Substance: INSULIN ASPART
     Dosage: 48 U, QD
     Route: 064
     Dates: end: 20140801
  6. ASPIRIN. [Concomitant]
     Active Substance: ASPIRIN
     Indication: PROPHYLAXIS
     Dosage: 75MG
     Route: 064
     Dates: start: 20140107
  7. LEVOTHYROXINE                      /00068002/ [Concomitant]
     Indication: THYROID DISORDER
     Dosage: 125 MCG
     Route: 064
     Dates: start: 20140501

REACTIONS (4)
  - Jaundice neonatal [Recovered/Resolved]
  - Hypoglycaemia neonatal [Recovered/Resolved]
  - Jaundice neonatal [Recovered/Resolved]
  - Foetal exposure during pregnancy [Recovered/Resolved]

NARRATIVE: CASE EVENT DATE: 20140802
